FAERS Safety Report 16037512 (Version 2)
Quarter: 2019Q1

REPORT INFORMATION
  Report Type: Spontaneous
  Country: GB (occurrence: GB)
  Receive Date: 20190305
  Receipt Date: 20190318
  Transmission Date: 20190418
  Serious: Yes (Other)
  Sender: FDA-Public Use
  Company Number: GB-PFIZER INC-08-AUR-03055

PATIENT
  Age: 34 Year
  Sex: Male

DRUGS (2)
  1. CHAMPIX [Suspect]
     Active Substance: VARENICLINE TARTRATE
     Indication: SMOKING CESSATION THERAPY
     Dosage: 1 MG, QD
     Route: 048
     Dates: end: 20080115
  2. CITALOPRAM [Interacting]
     Active Substance: CITALOPRAM HYDROBROMIDE
     Dosage: UNK
     Route: 048

REACTIONS (5)
  - Drug interaction [Recovered/Resolved]
  - Mania [Recovered/Resolved]
  - Hypomania [Recovered/Resolved]
  - Imprisonment [Unknown]
  - Aggression [Recovered/Resolved]
